FAERS Safety Report 8586741-3 (Version None)
Quarter: 2012Q3

REPORT INFORMATION
  Report Type: 
  Country: None (occurrence: None)
  Receive Date: 20120810
  Receipt Date: 20120801
  Transmission Date: 20120928
  Serious: Yes (Hospitalization, Disabling, Other)
  Sender: FDA-Public Use
  Company Number: US-009507513-1010USA01319

PATIENT

DRUGS (3)
  1. FOSAMAX [Suspect]
     Indication: OSTEOPOROSIS
     Dosage: 70 MG, UNK
     Route: 048
     Dates: start: 20020101, end: 20090101
  2. FOSAMAX [Suspect]
     Dosage: 10MG,QD
     Route: 048
     Dates: start: 19990715
  3. FOSAMAX [Suspect]
     Route: 048
     Dates: start: 20080705, end: 20090701

REACTIONS (27)
  - STRESS FRACTURE [None]
  - BONE DENSITY DECREASED [None]
  - ADVERSE DRUG REACTION [None]
  - DIVERTICULUM [None]
  - OSTEOPOROSIS [None]
  - HYPERLIPIDAEMIA [None]
  - NAIL DYSTROPHY [None]
  - HYPERTONIC BLADDER [None]
  - UMBILICAL HERNIA [None]
  - FALL [None]
  - BREAST DISORDER [None]
  - HYPOTHYROIDISM [None]
  - HERPES ZOSTER [None]
  - SINUS BRADYCARDIA [None]
  - ARTERIAL DISORDER [None]
  - BUNDLE BRANCH BLOCK LEFT [None]
  - FEMUR FRACTURE [None]
  - HAEMOGLOBIN DECREASED [None]
  - HORMONE LEVEL ABNORMAL [None]
  - FOOT FRACTURE [None]
  - LEFT VENTRICULAR HYPERTROPHY [None]
  - PAIN IN EXTREMITY [None]
  - FASCIAL HERNIA [None]
  - HYPERTENSION [None]
  - ORAL DISORDER [None]
  - LIVER DISORDER [None]
  - PELVIC ADHESIONS [None]
